FAERS Safety Report 4636557-5 (Version None)
Quarter: 2005Q2

REPORT INFORMATION
  Report Type: 
  Country: None (occurrence: None)
  Receive Date: 20050415
  Receipt Date: 20050408
  Transmission Date: 20051028
  Serious: Yes (Death, Hospitalization, Other)
  Sender: FDA-Public Use
  Company Number: PHBS2005AU05098

PATIENT
  Age: 31 Year
  Sex: Female

DRUGS (10)
  1. ATORVASTATIN CALCIUM [Concomitant]
  2. FRUSEMIDE [Concomitant]
  3. METHOTREXATE [Concomitant]
     Indication: STEM CELL TRANSPLANT
  4. BUSULPHAN [Concomitant]
     Indication: STEM CELL TRANSPLANT
  5. CYCLOPHOSPHAMIDE [Concomitant]
     Indication: STEM CELL TRANSPLANT
  6. PREDNISOLONE [Concomitant]
     Dosage: 60 MG/D
     Route: 065
  7. PREDNISOLONE [Concomitant]
     Dosage: 1 MG/KG/D
     Route: 065
  8. CYCLOSPORINE [Suspect]
     Indication: STEM CELL TRANSPLANT
     Dosage: 200 MG/D
     Route: 065
  9. CYCLOSPORINE [Suspect]
     Dosage: 100 MG/D
     Route: 065
  10. CYCLOSPORINE [Suspect]
     Route: 065

REACTIONS (20)
  - ACUTE MYELOID LEUKAEMIA RECURRENT [None]
  - ANTINEUTROPHIL CYTOPLASMIC ANTIBODY POSITIVE [None]
  - APPENDICECTOMY [None]
  - APPENDICITIS [None]
  - BLOOD CREATININE INCREASED [None]
  - DYSPNOEA [None]
  - GLOMERULONEPHRITIS MINIMAL LESION [None]
  - GRAFT VERSUS HOST DISEASE [None]
  - HYPOALBUMINAEMIA [None]
  - LYMPHADENOPATHY MEDIASTINAL [None]
  - MYELOBLAST COUNT INCREASED [None]
  - NEPHROTIC SYNDROME [None]
  - NEUTROPHILIA [None]
  - OEDEMA PERIPHERAL [None]
  - PERICARDIAL EFFUSION [None]
  - PLEURAL EFFUSION [None]
  - PROTEIN URINE PRESENT [None]
  - RASH MACULO-PAPULAR [None]
  - THROMBOCYTOPENIA [None]
  - WEIGHT INCREASED [None]
